FAERS Safety Report 9862398 (Version 2)
Quarter: 2014Q2

REPORT INFORMATION
  Report Type: Spontaneous
  Country: IT (occurrence: IT)
  Receive Date: 20140203
  Receipt Date: 20140415
  Transmission Date: 20141212
  Serious: Yes (Hospitalization)
  Sender: FDA-Public Use
  Company Number: IT-NOVOPROD-398509

PATIENT
  Age: 42 Year
  Sex: Male

DRUGS (5)
  1. NOVOMIX 30 FLEXPEN [Suspect]
     Indication: TYPE 1 DIABETES MELLITUS
     Dosage: UNK
     Route: 065
  2. NOVOMIX 30 FLEXPEN [Suspect]
     Dosage: 140 UNITS
     Route: 065
     Dates: start: 20131004
  3. METFORMINA                         /00082701/ [Suspect]
     Indication: TYPE 1 DIABETES MELLITUS
     Dosage: 850 MG 3 TABLETS PER DAY
     Route: 048
  4. METFORMINA                         /00082701/ [Suspect]
     Dosage: 8.5 GRAMS
     Route: 048
     Dates: start: 20131004
  5. LANTUS [Concomitant]
     Indication: TYPE 1 DIABETES MELLITUS
     Dosage: 20 U, QD

REACTIONS (3)
  - Suicide attempt [Recovered/Resolved]
  - Intentional overdose [Recovered/Resolved]
  - Hypoglycaemia [Recovered/Resolved]
